FAERS Safety Report 6890520-2 (Version None)
Quarter: 2010Q3

REPORT INFORMATION
  Report Type: 
  Country: None (occurrence: None)
  Receive Date: 20100731
  Receipt Date: 20081121
  Transmission Date: 20110219
  Serious: Yes (Other)
  Sender: FDA-Public Use
  Company Number: AT-PFIZER INC-2008084803

PATIENT

DRUGS (1)
  1. VIBRAMYCIN [Suspect]

REACTIONS (1)
  - POLYURIA [None]
